FAERS Safety Report 5343345-3 (Version None)
Quarter: 2007Q2

REPORT INFORMATION
  Report Type: 
  Country: None (occurrence: None)
  Receive Date: 20070501
  Receipt Date: 20070222
  Transmission Date: 20071010
  Serious: No
  Sender: FDA-Public Use
  Company Number: 200711229US

PATIENT
  Age: 31 Year
  Sex: Female

DRUGS (2)
  1. KETEK [Suspect]
     Indication: SINUSITIS
     Dosage: PO
     Route: 048
     Dates: start: 20070213, end: 20070219
  2. VITAMINS NOS (MVI) [Concomitant]

REACTIONS (4)
  - ANGIOEDEMA [None]
  - PRURITUS [None]
  - RASH GENERALISED [None]
  - URTICARIA [None]
